FAERS Safety Report 25196086 (Version 1)
Quarter: 2025Q2

REPORT INFORMATION
  Report Type: Spontaneous
  Country: NL (occurrence: NL)
  Receive Date: 20250415
  Receipt Date: 20250415
  Transmission Date: 20250717
  Serious: Yes (Death, Life-Threatening, Hospitalization, Other)
  Sender: IPCA
  Company Number: NL-IPCA LABORATORIES LIMITED-IPC-2025-NL-000902

PATIENT

DRUGS (3)
  1. QUETIAPINE [Suspect]
     Active Substance: QUETIAPINE
     Indication: Product used for unknown indication
     Route: 065
  2. 3-METHYLMETHCATHINONE [Suspect]
     Active Substance: 3-METHYLMETHCATHINONE
     Indication: Product used for unknown indication
     Route: 065
  3. OXYCODONE [Suspect]
     Active Substance: OXYCODONE
     Indication: Product used for unknown indication
     Route: 065

REACTIONS (17)
  - Toxic leukoencephalopathy [Fatal]
  - Acute kidney injury [Fatal]
  - Hyperkalaemia [Fatal]
  - Rhabdomyolysis [Fatal]
  - Shock [Fatal]
  - Coma [Fatal]
  - Cerebellar infarction [Fatal]
  - Brainstem compression [Fatal]
  - Brain herniation [Fatal]
  - Renal failure [Fatal]
  - Hepatic failure [Fatal]
  - Substance abuse [Fatal]
  - Hypertransaminasaemia [Fatal]
  - Hyperlactacidaemia [Fatal]
  - Drug interaction [Fatal]
  - Food interaction [Fatal]
  - Overdose [Fatal]
